FAERS Safety Report 18486154 (Version 1)
Quarter: 2020Q4

REPORT INFORMATION
  Report Type: Spontaneous
  Country: US (occurrence: US)
  Receive Date: 20201110
  Receipt Date: 20201110
  Transmission Date: 20210114
  Serious: No
  Sender: FDA-Public Use
  Company Number: US-GILEAD-2020-0502486

PATIENT
  Age: 64 Year
  Sex: Male

DRUGS (2)
  1. ASPIRIN C [Concomitant]
     Active Substance: ACETAMINOPHEN\ASCORBIC ACID
  2. EPCLUSA [Suspect]
     Active Substance: SOFOSBUVIR\VELPATASVIR
     Indication: CHRONIC HEPATITIS C
     Dosage: 1 DOSAGE FORM, QD
     Route: 048
     Dates: start: 20201012

REACTIONS (1)
  - Nasopharyngitis [Unknown]
